FAERS Safety Report 6519583-0 (Version None)
Quarter: 2009Q4

REPORT INFORMATION
  Report Type: 
  Country: None (occurrence: None)
  Receive Date: 20091228
  Receipt Date: 20091221
  Transmission Date: 20100525
  Serious: Yes (Life-Threatening, Hospitalization)
  Sender: FDA-Public Use
  Company Number: JP-JNJFOC-20091106583

PATIENT
  Sex: Male
  Weight: 54 kg

DRUGS (10)
  1. RISPERDAL CONSTA [Suspect]
     Indication: SCHIZOPHRENIA
     Route: 030
  2. RISPERDAL CONSTA [Suspect]
     Route: 030
  3. RISPERDAL CONSTA [Suspect]
     Route: 030
  4. RISPERDAL [Suspect]
     Indication: SCHIZOPHRENIA
     Route: 048
  5. VALPROATE SODIUM [Suspect]
     Indication: EPILEPSY
     Route: 048
  6. OLANZAPINE [Suspect]
     Indication: SCHIZOPHRENIA
     Route: 048
  7. OLANZAPINE [Suspect]
     Route: 048
  8. OLANZAPINE [Suspect]
     Route: 048
  9. OLANZAPINE [Suspect]
     Route: 048
  10. LEVOTOMIN [Concomitant]
     Indication: SCHIZOPHRENIA
     Route: 065

REACTIONS (1)
  - PANCYTOPENIA [None]
